FAERS Safety Report 19179106 (Version 5)
Quarter: 2021Q2

REPORT INFORMATION
  Report Type: Spontaneous
  Country: US (occurrence: US)
  Receive Date: 20210426
  Receipt Date: 20210531
  Transmission Date: 20210717
  Serious: No
  Sender: FDA-Public Use
  Company Number: US-BIOGEN-2021BI01002960

PATIENT
  Sex: Female

DRUGS (5)
  1. TECFIDERA [Suspect]
     Active Substance: DIMETHYL FUMARATE
     Indication: MULTIPLE SCLEROSIS
     Dosage: TAKE 1 CAPSULE BY MOUTH TWICE A DAY
     Route: 048
     Dates: start: 20170601
  2. NAPROXEN. [Concomitant]
     Active Substance: NAPROXEN
     Route: 065
  3. VITAMIN C [Concomitant]
     Active Substance: ASCORBIC ACID
     Route: 065
  4. IBANDRONATE SODIUM. [Concomitant]
     Active Substance: IBANDRONATE SODIUM
     Route: 065
  5. ASPIRIN 81 MG [Concomitant]
     Active Substance: ASPIRIN
     Route: 065

REACTIONS (14)
  - Pain in extremity [Not Recovered/Not Resolved]
  - Arthralgia [Unknown]
  - Multiple sclerosis relapse [Unknown]
  - Decreased immune responsiveness [Not Recovered/Not Resolved]
  - Pneumonia [Unknown]
  - Osteoporosis [Unknown]
  - Dyspnoea [Unknown]
  - Illness [Unknown]
  - Depression [Unknown]
  - Alopecia [Unknown]
  - Visual acuity reduced [Unknown]
  - Burning sensation [Not Recovered/Not Resolved]
  - Memory impairment [Unknown]
  - Peripheral swelling [Unknown]
